FAERS Safety Report 14491441 (Version 8)
Quarter: 2018Q4

REPORT INFORMATION
  Report Type: Spontaneous
  Country: BR (occurrence: BR)
  Receive Date: 20180206
  Receipt Date: 20181002
  Transmission Date: 20190204
  Serious: Yes (Hospitalization, Other)
  Sender: FDA-Public Use
  Company Number: BR-GLAXOSMITHKLINE-BR2017GSK126763

PATIENT
  Age: 45 Year
  Sex: Female
  Weight: 56 kg

DRUGS (4)
  1. METHOTREXATE. [Concomitant]
     Active Substance: METHOTREXATE
     Indication: PRODUCT USED FOR UNKNOWN INDICATION
     Dosage: 20 MG, UNK
  2. PREDNISONE. [Concomitant]
     Active Substance: PREDNISONE
     Indication: PRODUCT USED FOR UNKNOWN INDICATION
     Dosage: 20 MG, UNK
  3. HYDROXYCHLOROQUINE SULFATE. [Concomitant]
     Active Substance: HYDROXYCHLOROQUINE SULFATE
     Indication: PRODUCT USED FOR UNKNOWN INDICATION
     Dosage: UNK
  4. BENLYSTA [Suspect]
     Active Substance: BELIMUMAB
     Indication: SYSTEMIC LUPUS ERYTHEMATOSUS
     Dosage: 520 MG, UNK
     Dates: start: 20170629

REACTIONS (17)
  - Pleural infection [Recovered/Resolved]
  - Chest pain [Unknown]
  - Leukocytosis [Not Recovered/Not Resolved]
  - Pneumonia [Unknown]
  - Lymphadenopathy [Unknown]
  - Inappropriate schedule of product administration [Recovered/Resolved]
  - Pleural disorder [Not Recovered/Not Resolved]
  - Dyspnoea [Unknown]
  - Pyrexia [Unknown]
  - Pneumothorax [Recovered/Resolved]
  - Lung infection [Not Recovered/Not Resolved]
  - Pain [Unknown]
  - Neoplasm [Unknown]
  - Breast mass [Unknown]
  - Anaemia [Not Recovered/Not Resolved]
  - Muscle spasms [Unknown]
  - Product dose omission [Not Recovered/Not Resolved]

NARRATIVE: CASE EVENT DATE: 201812
